FAERS Safety Report 5021122-0 (Version None)
Quarter: 2006Q2

REPORT INFORMATION
  Report Type: 
  Country: None (occurrence: None)
  Receive Date: 20060607
  Receipt Date: 20060607
  Transmission Date: 20061013
  Serious: Yes (Other)
  Sender: FDA-Public Use
  Company Number: None

PATIENT
  Age: 66 Year
  Sex: Female
  Weight: 122.4712 kg

DRUGS (1)
  1. MOBIC [Suspect]
     Indication: ARTHRITIS
     Dosage: 7.5MG  DAILY  PO
     Route: 048
     Dates: start: 20050128, end: 20060425

REACTIONS (2)
  - NORMOCHROMIC NORMOCYTIC ANAEMIA [None]
  - RENAL FAILURE [None]
